FAERS Safety Report 6342405-8 (Version None)
Quarter: 2009Q3

REPORT INFORMATION
  Report Type: 
  Country: None (occurrence: None)
  Receive Date: 20090908
  Receipt Date: 20010109
  Transmission Date: 20100115
  Serious: No
  Sender: FDA-Public Use
  Company Number: US-ROCHE-252296

PATIENT
  Sex: Female

DRUGS (1)
  1. TAMIFLU [Suspect]
     Indication: PROPHYLAXIS
     Route: 048
     Dates: start: 20010104, end: 20010109

REACTIONS (1)
  - DRUG EXPOSURE DURING PREGNANCY [None]
